FAERS Safety Report 11715690 (Version 2)
Quarter: 2015Q4

REPORT INFORMATION
  Report Type: Spontaneous
  Country: US (occurrence: US)
  Receive Date: 20151104
  Receipt Date: 20151110
  Transmission Date: 20160304
  Serious: No
  Sender: FDA-Public Use
  Company Number: US-ELI_LILLY_AND_COMPANY-US201107002158

PATIENT
  Sex: Female

DRUGS (2)
  1. FORTEO [Suspect]
     Active Substance: TERIPARATIDE
     Dosage: UNK, UNKNOWN
     Route: 065
  2. FORTEO [Suspect]
     Active Substance: TERIPARATIDE
     Indication: OSTEOPOROSIS
     Dosage: UNK, UNKNOWN
     Route: 065

REACTIONS (9)
  - Injection site bruising [Recovered/Resolved]
  - Pain in extremity [Unknown]
  - Varicose vein [Unknown]
  - Nervousness [Not Recovered/Not Resolved]
  - Bone pain [Unknown]
  - Varicophlebitis [Unknown]
  - Vascular pain [Unknown]
  - Muscle spasms [Recovered/Resolved]
  - Sleep disorder due to a general medical condition [Unknown]
